FAERS Safety Report 5983902-4 (Version None)
Quarter: 2008Q4

REPORT INFORMATION
  Report Type: 
  Country: None (occurrence: None)
  Receive Date: 20081208
  Receipt Date: 20081009
  Transmission Date: 20090506
  Serious: Yes (Hospitalization)
  Sender: FDA-Public Use
  Company Number: US-AMGEN-QUU312758

PATIENT
  Sex: Female

DRUGS (3)
  1. ENBREL [Suspect]
     Indication: RHEUMATOID ARTHRITIS
     Route: 058
     Dates: start: 20060101
  2. ARAVA [Concomitant]
  3. PREDNISONE TAB [Concomitant]

REACTIONS (6)
  - CONTUSION [None]
  - DIVERTICULITIS [None]
  - INJECTION SITE PAIN [None]
  - OSTEOPOROSIS [None]
  - PAIN [None]
  - TEETH BRITTLE [None]
